FAERS Safety Report 17003810 (Version 4)
Quarter: 2020Q1

REPORT INFORMATION
  Report Type: Spontaneous
  Country: JP (occurrence: JP)
  Receive Date: 20191107
  Receipt Date: 20200327
  Transmission Date: 20200409
  Serious: Yes (Death, Life-Threatening, Other)
  Sender: FDA-Public Use
  Company Number: JP-TEVA-201910_00008079

PATIENT
  Age: 80 Year
  Sex: Male
  Weight: 60 kg

DRUGS (15)
  1. DEXART [Suspect]
     Active Substance: DEXAMETHASONE SODIUM PHOSPHATE
     Route: 065
  2. NICORANDIL [Suspect]
     Active Substance: NICORANDIL
     Indication: HYPERTENSION
     Dosage: 15 MILLIGRAM DAILY;
     Route: 048
     Dates: start: 20190414, end: 20190512
  3. SOL-MELCORT [Suspect]
     Active Substance: METHYLPREDNISOLONE SODIUM SUCCINATE
     Route: 042
     Dates: start: 20190514, end: 20190516
  4. PREDNISOLONE POWDER 1% [Suspect]
     Active Substance: PREDNISOLONE
     Indication: RASH
     Route: 065
     Dates: start: 20190517
  5. BISOPROLOL FUMARATE. [Concomitant]
     Active Substance: BISOPROLOL FUMARATE
     Indication: HYPERTENSION
     Dosage: 2.5 MILLIGRAM DAILY;
     Route: 048
     Dates: start: 20190422, end: 20190529
  6. CALBLOCK [Concomitant]
     Active Substance: AZELNIDIPINE
     Indication: HYPERTENSION
     Dosage: 16 MILLIGRAM DAILY;
     Route: 048
     Dates: start: 20190514, end: 20190523
  7. TAKECAB TABLETS 20MG [Suspect]
     Active Substance: VONOPRAZAN FUMURATE
     Dosage: 20 MILLIGRAM DAILY;
     Route: 048
     Dates: start: 20190514, end: 20190517
  8. ASPIRIN. [Suspect]
     Active Substance: ASPIRIN
     Route: 048
     Dates: start: 20190409, end: 20190418
  9. NIFEDIPINE. [Concomitant]
     Active Substance: NIFEDIPINE
     Indication: HYPERTENSION
     Dosage: 40 MILLIGRAM DAILY;
     Route: 048
     Dates: start: 20190429, end: 20190512
  10. TAKECAB TABLETS 20MG [Suspect]
     Active Substance: VONOPRAZAN FUMURATE
     Indication: GASTRIC ULCER HAEMORRHAGE
     Dosage: 20 MILLIGRAM DAILY;
     Route: 048
     Dates: start: 20190423, end: 20190429
  11. PREDONINE [Suspect]
     Active Substance: PREDNISOLONE
     Route: 065
     Dates: start: 20190604, end: 20190608
  12. TELMISARTAN. [Concomitant]
     Active Substance: TELMISARTAN
     Indication: HYPERTENSION
     Dosage: 40 MILLIGRAM DAILY;
     Route: 048
     Dates: start: 20190425, end: 20190523
  13. TAKEPRON INTRAVENOUS 30MG [Suspect]
     Active Substance: LANSOPRAZOLE
     Indication: GASTRIC ULCER HAEMORRHAGE
     Dosage: 30 MILLIGRAM DAILY;
     Route: 042
     Dates: start: 20190430, end: 20190510
  14. PREDONINE [Suspect]
     Active Substance: PREDNISOLONE
     Route: 065
     Dates: start: 20190531, end: 20190603
  15. PREDONINE [Suspect]
     Active Substance: PREDNISOLONE
     Route: 065
     Dates: start: 20190609, end: 20190609

REACTIONS (9)
  - Gastric ulcer [Fatal]
  - Toxic epidermal necrolysis [Recovering/Resolving]
  - Stevens-Johnson syndrome [Recovering/Resolving]
  - Epistaxis [Unknown]
  - Drug ineffective [Unknown]
  - Pneumonia staphylococcal [Unknown]
  - Drug interaction [Unknown]
  - Condition aggravated [Fatal]
  - Shock haemorrhagic [Fatal]

NARRATIVE: CASE EVENT DATE: 20190510
